FAERS Safety Report 7040251-3 (Version None)
Quarter: 2010Q4

REPORT INFORMATION
  Report Type: 
  Country: None (occurrence: None)
  Receive Date: 20101012
  Receipt Date: 20101001
  Transmission Date: 20110411
  Serious: Yes (Hospitalization)
  Sender: FDA-Public Use
  Company Number: US-BAYER-201021302BCC

PATIENT
  Age: 42 Year
  Sex: Female
  Weight: 73 kg

DRUGS (3)
  1. RID COMPLETE ELIMINATION KIT [Suspect]
     Indication: LICE INFESTATION
     Dosage: TOTAL OF FOUR TREATMENTS
     Route: 061
  2. DOLLAR GENERAL BRAND TREATMENT [Concomitant]
     Indication: LICE INFESTATION
     Route: 065
  3. PRENATAL VITAMINS [Concomitant]
     Route: 065

REACTIONS (7)
  - CYST [None]
  - LICE INFESTATION [None]
  - PREMATURE LABOUR [None]
  - PREMATURE SEPARATION OF PLACENTA [None]
  - RASH PRURITIC [None]
  - SKIN ULCER [None]
  - STICKY SKIN [None]
